FAERS Safety Report 19092733 (Version 1)
Quarter: 2021Q2

REPORT INFORMATION
  Report Type: Spontaneous
  Country: CN (occurrence: CN)
  Receive Date: 20210405
  Receipt Date: 20210405
  Transmission Date: 20210717
  Serious: Yes (Other)
  Sender: FDA-Public Use
  Company Number: CN-PFIZER INC-2021339242

PATIENT
  Age: 62 Year
  Sex: Male
  Weight: 85 kg

DRUGS (2)
  1. METHOTREXATE SODIUM. [Suspect]
     Active Substance: METHOTREXATE SODIUM
     Dosage: 2 G, CYCLIC (D1)
     Dates: start: 20200106
  2. CYTARABINE. [Concomitant]
     Active Substance: CYTARABINE
     Dosage: 2 G, CYCLIC (Q12H ON D2?3)
     Dates: start: 20200106

REACTIONS (5)
  - Agranulocytosis [Recovering/Resolving]
  - Acute kidney injury [Recovering/Resolving]
  - Cardiac failure [Recovering/Resolving]
  - Pyrexia [Recovering/Resolving]
  - Drug clearance decreased [Recovering/Resolving]

NARRATIVE: CASE EVENT DATE: 20200107
